FAERS Safety Report 8359819-7 (Version None)
Quarter: 2012Q2

REPORT INFORMATION
  Report Type: 
  Country: None (occurrence: None)
  Receive Date: 20120515
  Receipt Date: 20120509
  Transmission Date: 20120825
  Serious: Yes (Other)
  Sender: FDA-Public Use
  Company Number: PHFR2012GB001597

PATIENT
  Sex: Female

DRUGS (6)
  1. CLOZARIL [Suspect]
     Indication: DEPRESSION
     Route: 048
     Dates: start: 20110222
  2. MIRTAZAPINE [Concomitant]
     Dosage: 45 MG, UNK
     Route: 048
  3. HYOSCINE HYDROBROMIDE [Concomitant]
     Indication: SALIVARY HYPERSECRETION
     Dosage: 900 UG, UNK
     Route: 048
  4. DIAZEPAM [Concomitant]
     Indication: ANXIETY
     Dosage: 5 MG, UNK
     Route: 048
  5. CLOZARIL [Suspect]
     Dosage: 200 MG, UNK
     Route: 048
  6. LITHIUM CARBONATE [Concomitant]
     Indication: DEPRESSION
     Dosage: 600 MG, UNK

REACTIONS (5)
  - HAEMOGLOBIN DECREASED [None]
  - PLATELET COUNT DECREASED [None]
  - MENORRHAGIA [None]
  - WHITE BLOOD CELL COUNT DECREASED [None]
  - UTERINE LEIOMYOMA [None]
